FAERS Safety Report 5008192-0 (Version None)
Quarter: 2006Q2

REPORT INFORMATION
  Report Type: 
  Country: None (occurrence: None)
  Receive Date: 20060522
  Receipt Date: 20060503
  Transmission Date: 20061013
  Serious: Yes (Hospitalization)
  Sender: FDA-Public Use
  Company Number: FR-MERCK-0605USA03816

PATIENT
  Age: 71 Year
  Sex: Female

DRUGS (5)
  1. DIHYDROERGOCRYPTINE MESYLATE [Concomitant]
     Route: 048
     Dates: end: 20060301
  2. DAFLON (DIOSMIN) [Concomitant]
     Route: 048
  3. FORMOTEROL FUMARATE [Concomitant]
     Route: 048
  4. ESTRADIOL [Concomitant]
     Route: 061
  5. ZOCOR [Suspect]
     Indication: HYPERCHOLESTEROLAEMIA
     Route: 048
     Dates: end: 20060317

REACTIONS (1)
  - PNEUMONITIS [None]
